FAERS Safety Report 6749605-3 (Version None)
Quarter: 2010Q2

REPORT INFORMATION
  Report Type: 
  Country: None (occurrence: None)
  Receive Date: 20100601
  Receipt Date: 20100521
  Transmission Date: 20101027
  Serious: No
  Sender: FDA-Public Use
  Company Number: A0852238A

PATIENT
  Age: 57 Year
  Sex: Male

DRUGS (5)
  1. PROMACTA [Suspect]
     Dates: start: 20091104
  2. NEXIUM [Concomitant]
  3. VICODIN [Concomitant]
  4. INTERFERON [Concomitant]
  5. RIBAVIRIN [Concomitant]

REACTIONS (1)
  - NO ADVERSE EVENT [None]
